FAERS Safety Report 26065110 (Version 1)
Quarter: 2025Q4

REPORT INFORMATION
  Report Type: Spontaneous
  Country: US (occurrence: US)
  Receive Date: 20251119
  Receipt Date: 20251119
  Transmission Date: 20260117
  Serious: No
  Sender: BAYER HEALTHCARE LLC
  Company Number: US-BAYER-2025A152723

PATIENT
  Age: 66 Year
  Sex: Female

DRUGS (1)
  1. MIRALAX [Suspect]
     Active Substance: POLYETHYLENE GLYCOL 3350
     Indication: Surgery
     Dosage: 510G WITH 64OZ OF GATORADE
     Route: 048
     Dates: start: 20251119, end: 20251119

REACTIONS (1)
  - Product prescribing issue [None]

NARRATIVE: CASE EVENT DATE: 20251119
